FAERS Safety Report 5797176-0 (Version None)
Quarter: 2008Q3

REPORT INFORMATION
  Report Type: 
  Country: None (occurrence: None)
  Receive Date: 20080701
  Receipt Date: 20080619
  Transmission Date: 20090109
  Serious: Yes (Other)
  Sender: FDA-Public Use
  Company Number: BE-PFIZER INC-2008037385

PATIENT
  Sex: Male
  Weight: 87 kg

DRUGS (7)
  1. CHANTIX [Suspect]
     Indication: SMOKING CESSATION THERAPY
     Route: 048
  2. PLAVIX [Interacting]
     Indication: ARTERITIS
     Route: 048
  3. CARDIOASPIRINE [Concomitant]
     Route: 048
  4. EMCONCOR [Concomitant]
     Route: 048
  5. ATACAND [Concomitant]
     Route: 048
  6. COMTAN [Concomitant]
     Route: 048
  7. SINEMET [Concomitant]
     Route: 048

REACTIONS (8)
  - ABDOMINAL PAIN [None]
  - ABDOMINAL PAIN UPPER [None]
  - DRUG INTERACTION [None]
  - HAEMATOCHEZIA [None]
  - HAEMATOCRIT DECREASED [None]
  - RASH [None]
  - SOMNOLENCE [None]
  - TONGUE DISORDER [None]
